FAERS Safety Report 20739182 (Version 2)
Quarter: 2022Q2

REPORT INFORMATION
  Report Type: Report from Study
  Country: US (occurrence: US)
  Receive Date: 20220422
  Receipt Date: 20220601
  Transmission Date: 20220720
  Serious: Yes (Other)
  Sender: FDA-Public Use
  Company Number: US-BRISTOL-MYERS SQUIBB COMPANY-2022-022129

PATIENT
  Age: 83 Year
  Sex: Male
  Weight: 74.8 kg

DRUGS (26)
  1. REVLIMID [Suspect]
     Active Substance: LENALIDOMIDE
     Indication: Plasma cell myeloma
     Dosage: DAILY 21 DAYS
     Route: 048
     Dates: start: 202111
  2. REVLIMID [Suspect]
     Active Substance: LENALIDOMIDE
     Dosage: 21 OUT OF 28 DAYS
     Route: 048
  3. DEXAMETHASONE [Concomitant]
     Active Substance: DEXAMETHASONE
  4. ASPIRIN [Concomitant]
     Active Substance: ASPIRIN
  5. VITAMIN C [Concomitant]
     Active Substance: ASCORBIC ACID
  6. HYDROCODONE [Concomitant]
     Active Substance: HYDROCODONE
  7. GABAPENTIN [Concomitant]
     Active Substance: GABAPENTIN
  8. ARANESP [Concomitant]
     Active Substance: DARBEPOETIN ALFA
  9. OXYGEN [Concomitant]
     Active Substance: OXYGEN
  10. LUMIGAN [Concomitant]
     Active Substance: BIMATOPROST
  11. ZYRTEC [Concomitant]
     Active Substance: CETIRIZINE HYDROCHLORIDE
  12. COLCHICINE [Concomitant]
     Active Substance: COLCHICINE
  13. PROCHLORPERAZINE MALEATE [Concomitant]
     Active Substance: PROCHLORPERAZINE MALEATE
  14. PANTOPRAZOLE SODIUM [Concomitant]
     Active Substance: PANTOPRAZOLE SODIUM
  15. DICLOFENAC SODIUM [Concomitant]
     Active Substance: DICLOFENAC SODIUM
  16. POTASSIUM CHLORIDE [Concomitant]
     Active Substance: POTASSIUM CHLORIDE
  17. COMBIVENT [Concomitant]
     Active Substance: ALBUTEROL SULFATE\IPRATROPIUM BROMIDE
  18. BACTRIM [Concomitant]
     Active Substance: SULFAMETHOXAZOLE\TRIMETHOPRIM
  19. ALBUTEROL SULFATE [Concomitant]
     Active Substance: ALBUTEROL SULFATE
  20. ONDANSETRON [Concomitant]
     Active Substance: ONDANSETRON
  21. METFORMIN [Concomitant]
     Active Substance: METFORMIN HYDROCHLORIDE
  22. VALACYCLOVIR [Concomitant]
     Active Substance: VALACYCLOVIR HYDROCHLORIDE
  23. VITAMINS NOS [Concomitant]
     Active Substance: VITAMINS
  24. IBUPROFEN [Concomitant]
     Active Substance: IBUPROFEN
  25. TYLENOL [Concomitant]
     Active Substance: ACETAMINOPHEN
  26. ATORVASTATIN CALCIUM [Concomitant]
     Active Substance: ATORVASTATIN CALCIUM

REACTIONS (2)
  - Diarrhoea [Unknown]
  - Diverticulum [Unknown]
